FAERS Safety Report 9999192 (Version 1)
Quarter: 2014Q1

REPORT INFORMATION
  Report Type: Spontaneous
  Country: US (occurrence: None)
  Receive Date: 20140311
  Receipt Date: 20140311
  Transmission Date: 20141002
  Serious: Yes (Life-Threatening)
  Sender: FDA-Public Use
  Company Number: None

PATIENT
  Age: 42 Year
  Sex: Male
  Weight: 72.58 kg

DRUGS (1)
  1. VYVANSE [Suspect]
     Indication: ATTENTION DEFICIT/HYPERACTIVITY DISORDER
     Dosage: 1 PILL IN AM ONCE DAILY TAKEN BY MOUTH
     Route: 048
     Dates: start: 20130116, end: 20140215

REACTIONS (11)
  - Anxiety [None]
  - Aggression [None]
  - Agitation [None]
  - Alcohol use [None]
  - Amnesia [None]
  - Alcohol interaction [None]
  - Drug dose omission [None]
  - Overdose [None]
  - Anger [None]
  - Abnormal behaviour [None]
  - Legal problem [None]
